FAERS Safety Report 25182576 (Version 1)
Quarter: 2025Q2

REPORT INFORMATION
  Report Type: Spontaneous
  Country: PL (occurrence: PL)
  Receive Date: 20250410
  Receipt Date: 20250410
  Transmission Date: 20250716
  Serious: Yes (Hospitalization, Other)
  Sender: RANBAXY
  Company Number: PL-SUN PHARMACEUTICAL INDUSTRIES LTD-2025R1-502488

PATIENT
  Age: 22 Year
  Sex: Female
  Weight: 61 kg

DRUGS (1)
  1. ACETAMINOPHEN [Suspect]
     Active Substance: ACETAMINOPHEN
     Indication: Arthralgia
     Route: 065

REACTIONS (3)
  - Exposure during pregnancy [Unknown]
  - Drug ineffective [Unknown]
  - Premature delivery [Unknown]
